FAERS Safety Report 9380601 (Version 2)
Quarter: 2013Q3

REPORT INFORMATION
  Report Type: Spontaneous
  Country: US (occurrence: US)
  Receive Date: 20130702
  Receipt Date: 20130717
  Transmission Date: 20140515
  Serious: Yes (Disabling, Other)
  Sender: FDA-Public Use
  Company Number: US-PFIZER INC-2013196468

PATIENT
  Age: 45 Year
  Sex: Male
  Weight: 81.63 kg

DRUGS (8)
  1. ALPRAZOLAM [Suspect]
     Indication: ANXIETY
     Dosage: UNK
  2. XANAX [Suspect]
     Indication: ANXIETY
     Dosage: 1 MG, 2X/DAY
  3. INTERFERON [Suspect]
     Indication: HEPATIC CIRRHOSIS
     Dosage: UNK
  4. LACTULOSE [Suspect]
     Indication: HEPATIC CIRRHOSIS
     Dosage: UNK
  5. RIBAVIRIN [Suspect]
     Indication: HEPATIC CIRRHOSIS
     Dosage: UNK
  6. BIAXIN XL [Concomitant]
     Indication: BLOOD DISORDER
     Dosage: 500 MG, 2X/DAY
  7. BIAXIN XL [Concomitant]
     Indication: SINUSITIS
  8. BIAXIN XL [Concomitant]
     Indication: EAR INFECTION

REACTIONS (9)
  - Spinal fracture [Unknown]
  - Cervical vertebral fracture [Unknown]
  - Road traffic accident [Unknown]
  - Hepatitis C [Unknown]
  - Hepatic cirrhosis [Not Recovered/Not Resolved]
  - Drug ineffective [Unknown]
  - Muscle spasms [Unknown]
  - Blood pressure management [Unknown]
  - Therapeutic response unexpected [Unknown]
